FAERS Safety Report 4529989-7 (Version None)
Quarter: 2004Q4

REPORT INFORMATION
  Report Type: 
  Country: None (occurrence: None)
  Receive Date: 20041217
  Receipt Date: 20041207
  Transmission Date: 20050328
  Serious: Yes (Hospitalization)
  Sender: FDA-Public Use
  Company Number: US-JNJFOC-20041202428

PATIENT
  Sex: Female
  Weight: 53.52 kg

DRUGS (1)
  1. DURAGESIC [Suspect]
     Route: 062
     Dates: start: 20041101

REACTIONS (3)
  - APPLICATION SITE DERMATITIS [None]
  - APPLICATION SITE ERYTHEMA [None]
  - KIDNEY INFECTION [None]
